FAERS Safety Report 24164553 (Version 1)
Quarter: 2024Q3

REPORT INFORMATION
  Report Type: Spontaneous
  Country: US (occurrence: US)
  Receive Date: 20240801
  Receipt Date: 20240801
  Transmission Date: 20241017
  Serious: Yes (Hospitalization, Other)
  Sender: ASCENT
  Company Number: US-ASCENT-2024ASLIT00018

PATIENT
  Age: 26 Year
  Sex: Male

DRUGS (1)
  1. OXYCODONE HYDROCHLORIDE [Suspect]
     Active Substance: OXYCODONE HYDROCHLORIDE
     Indication: Product used for unknown indication
     Dosage: 40 TO 50 TABLETS
     Route: 048

REACTIONS (11)
  - Leukoencephalopathy [Recovered/Resolved]
  - Quadriplegia [Recovered/Resolved]
  - Acute respiratory failure [Recovered/Resolved]
  - Pneumonia aspiration [Recovered/Resolved]
  - Acute kidney injury [Recovered/Resolved]
  - Cardio-respiratory arrest [Recovered/Resolved]
  - Rhabdomyolysis [Recovered/Resolved]
  - Anosognosia [Recovered/Resolved]
  - Respiratory acidosis [Recovered/Resolved]
  - Overdose [Unknown]
  - Toxicity to various agents [Unknown]
